FAERS Safety Report 4370498-6 (Version None)
Quarter: 2004Q2

REPORT INFORMATION
  Report Type: 
  Country: None (occurrence: None)
  Receive Date: 20040601
  Receipt Date: 20031112
  Transmission Date: 20050107
  Serious: Yes (Death, Hospitalization)
  Sender: FDA-Public Use
  Company Number: US043385

PATIENT
  Age: 58 Year
  Sex: Male

DRUGS (4)
  1. ENBREL [Suspect]
     Indication: RHEUMATOID ARTHRITIS
     Dosage: 25 MG TWICE WEEKLY SC
     Route: 058
     Dates: start: 20020114, end: 20030708
  2. PREDNISONE [Suspect]
     Indication: RHEUMATOID ARTHRITIS
     Dosage: 10 MG DAILY
     Dates: start: 20000119, end: 20030822
  3. METHOTREXATE [Suspect]
     Indication: RHEUMATOID ARTHRITIS
     Dosage: 25 MG WEEKLY
     Dates: start: 19971211, end: 20030701
  4. DICLOFENAC SODIUM [Concomitant]

REACTIONS (3)
  - BACTERIAL SEPSIS [None]
  - EMPYEMA [None]
  - PNEUMONIA ASPERGILLUS [None]
